FAERS Safety Report 19116280 (Version 2)
Quarter: 2021Q2

REPORT INFORMATION
  Report Type: Spontaneous
  Country: US (occurrence: US)
  Receive Date: 20210409
  Receipt Date: 20210514
  Transmission Date: 20210717
  Serious: No
  Sender: FDA-Public Use
  Company Number: US-ASTRAZENECA-2021A136084

PATIENT
  Age: 66 Year
  Sex: Female

DRUGS (3)
  1. SYMBICORT [Suspect]
     Active Substance: BUDESONIDE\FORMOTEROL FUMARATE DIHYDRATE
     Indication: SURGERY
     Dosage: SYMBICORT 80/4.5 MCGS 2 PUFFS
     Route: 055
     Dates: start: 2017
  2. SYMBICORT [Suspect]
     Active Substance: BUDESONIDE\FORMOTEROL FUMARATE DIHYDRATE
     Indication: SURGERY
     Dosage: ONE PUFF TWICE DAILY
     Route: 055
     Dates: start: 2017
  3. BUDESONIDE FORMOTEROL DIHYDRATE [Suspect]
     Active Substance: BUDESONIDE\FORMOTEROL FUMARATE DIHYDRATE
     Indication: SURGERY
     Dosage: 80?4.5 MCG 1 PUFF
     Route: 055
     Dates: start: 202101

REACTIONS (5)
  - Intentional device misuse [Unknown]
  - Hypertension [Unknown]
  - Product use in unapproved indication [Unknown]
  - Device defective [Unknown]
  - Insurance issue [Unknown]

NARRATIVE: CASE EVENT DATE: 2017
